FAERS Safety Report 13380715 (Version 1)
Quarter: 2017Q1

REPORT INFORMATION
  Report Type: Spontaneous
  Country: BR (occurrence: BR)
  Receive Date: 20170329
  Receipt Date: 20170329
  Transmission Date: 20170429
  Serious: Yes (Other)
  Sender: FDA-Public Use
  Company Number: BR-AUROBINDO-AUR-APL-2017-31278

PATIENT
  Age: 82 Year
  Sex: Female

DRUGS (1)
  1. LOSARTAN 50MG [Suspect]
     Active Substance: LOSARTAN
     Indication: HYPERTENSION
     Dosage: 50 MG, FOR FOUR MONTHS
     Route: 065

REACTIONS (5)
  - Abdominal tenderness [Recovered/Resolved]
  - Diarrhoea [Recovered/Resolved]
  - Abdominal pain upper [Recovered/Resolved]
  - Vomiting [Recovered/Resolved]
  - Intestinal angioedema [Recovered/Resolved]
